FAERS Safety Report 5049724-6 (Version None)
Quarter: 2006Q3

REPORT INFORMATION
  Report Type: 
  Country: None (occurrence: None)
  Receive Date: 20060707
  Receipt Date: 20060623
  Transmission Date: 20061208
  Serious: Yes (Other)
  Sender: FDA-Public Use
  Company Number: TRP_0801_2006

PATIENT
  Age: 59 Year
  Sex: Male
  Weight: 77.1115 kg

DRUGS (6)
  1. RIBASPHERE [Suspect]
     Indication: HEPATITIS C
     Dosage: VAR BID PO
     Route: 048
     Dates: start: 20060310
  2. PEG-INTRON [Suspect]
     Indication: HEPATITIS C
     Dosage: 120 MCG QWK SC
     Route: 058
     Dates: start: 20060310
  3. SULFATRIM-DS [Concomitant]
  4. PLAVIX [Concomitant]
  5. ZIAC [Concomitant]
  6. AMITRIPYTLINE HYDROCHLORIDE [Concomitant]

REACTIONS (2)
  - IMPAIRED HEALING [None]
  - SKIN ULCER [None]
